FAERS Safety Report 5449864-3 (Version None)
Quarter: 2007Q3

REPORT INFORMATION
  Report Type: 
  Country: None (occurrence: None)
  Receive Date: 20070907
  Receipt Date: 20070907
  Transmission Date: 20080115
  Serious: No
  Sender: FDA-Public Use
  Company Number: None

PATIENT
  Age: 75 Year
  Sex: Female
  Weight: 73.9363 kg

DRUGS (3)
  1. GABEPENTIN 300 NDC 00093103901TEVA [Suspect]
     Indication: DIABETES MELLITUS
     Dosage: 300 MG TID PO
     Route: 048
     Dates: start: 20070501, end: 20070830
  2. GABEPENTIN 300 NDC 00093103901TEVA [Suspect]
     Indication: NEUROPATHY
     Dosage: 300 MG TID PO
     Route: 048
     Dates: start: 20070501, end: 20070830
  3. GABEPENTIN 300 NDC 00172438200 IVAX [Suspect]
     Dosage: 300 MG TID PO
     Route: 048

REACTIONS (1)
  - DRUG INEFFECTIVE [None]
